FAERS Safety Report 15495057 (Version 1)
Quarter: 2018Q4

REPORT INFORMATION
  Report Type: Spontaneous
  Country: US (occurrence: US)
  Receive Date: 20181012
  Receipt Date: 20181012
  Transmission Date: 20190205
  Serious: No
  Sender: FDA-Public Use
  Company Number: US-BAYER-2018-191395

PATIENT
  Age: 92 Year
  Sex: Male
  Weight: 63.99 kg

DRUGS (1)
  1. ALEVE PM [Suspect]
     Active Substance: DIPHENHYDRAMINE HYDROCHLORIDE\NAPROXEN SODIUM
     Dosage: 1 PILLS TO A GLASS OF WATER DOSE
     Route: 048

REACTIONS (1)
  - Drug ineffective [Unknown]
